FAERS Safety Report 20040532 (Version 1)
Quarter: 2021Q4

REPORT INFORMATION
  Report Type: Spontaneous
  Country: US (occurrence: None)
  Receive Date: 20211106
  Receipt Date: 20211106
  Transmission Date: 20220303
  Serious: No
  Sender: FDA-Public Use
  Company Number: None

PATIENT
  Sex: Female

DRUGS (16)
  1. EVEROLIMUS [Suspect]
     Active Substance: EVEROLIMUS
     Indication: Breast cancer
  2. NOVOLOG [Concomitant]
     Active Substance: INSULIN ASPART
  3. ASPIRIN [Concomitant]
     Active Substance: ASPIRIN
  4. BASAGLAR [Concomitant]
     Active Substance: INSULIN GLARGINE
  5. LETROZOLE [Concomitant]
     Active Substance: LETROZOLE
  6. METHENAMINE [Concomitant]
     Active Substance: METHENAMINE
  7. TRIMETHOPRIM [Concomitant]
     Active Substance: TRIMETHOPRIM
  8. VITAMIN D [Concomitant]
     Active Substance: VITAMIN D NOS
  9. IRON [Concomitant]
     Active Substance: IRON
  10. XGEVA [Concomitant]
     Active Substance: DENOSUMAB
  11. BENZONATATE [Concomitant]
     Active Substance: BENZONATATE
  12. ALBUTEROL [Concomitant]
     Active Substance: ALBUTEROL
  13. BUDESONIDE [Concomitant]
     Active Substance: BUDESONIDE
  14. MOBIC [Concomitant]
     Active Substance: MELOXICAM
  15. DEXAMETHASONE [Concomitant]
     Active Substance: DEXAMETHASONE
  16. ZOFRAN [Concomitant]
     Active Substance: ONDANSETRON HYDROCHLORIDE

REACTIONS (1)
  - Drug ineffective [None]
